FAERS Safety Report 4824376-6 (Version None)
Quarter: 2005Q4

REPORT INFORMATION
  Report Type: 
  Country: None (occurrence: None)
  Receive Date: 20051108
  Receipt Date: 20051027
  Transmission Date: 20060501
  Serious: No
  Sender: FDA-Public Use
  Company Number: USA0510112062

PATIENT
  Age: 65 Year
  Sex: Female

DRUGS (5)
  1. CYMBALTA [Suspect]
     Indication: DEPRESSION
     Dosage: 60 MG DAY
     Dates: start: 20050701, end: 20051025
  2. PLAVIX [Concomitant]
  3. AMLODIPINE BESYLATE W/ BENAZEPRIL HYDROCHLOR. [Concomitant]
  4. AMBIEN [Concomitant]
  5. ESTROGENS CONJUGATED W/MEDROXYPROGEST ACETATE [Concomitant]

REACTIONS (10)
  - ABDOMINAL PAIN [None]
  - BACK PAIN [None]
  - CHEST PAIN [None]
  - CHROMATURIA [None]
  - HORMONE LEVEL ABNORMAL [None]
  - INFLUENZA LIKE ILLNESS [None]
  - MALAISE [None]
  - PAIN IN EXTREMITY [None]
  - PRURITUS [None]
  - SHOULDER PAIN [None]
